FAERS Safety Report 19726122 (Version 1)
Quarter: 2021Q3

REPORT INFORMATION
  Report Type: Spontaneous
  Country: DE (occurrence: DE)
  Receive Date: 20210819
  Receipt Date: 20210819
  Transmission Date: 20211014
  Serious: Yes (Other)
  Sender: FDA-Public Use
  Company Number: DE-UCBSA-2021039567

PATIENT
  Age: 39 Year
  Sex: Male

DRUGS (8)
  1. VIMPAT [Suspect]
     Active Substance: LACOSAMIDE
     Indication: PARTIAL SEIZURES
  2. VALPROAT [Concomitant]
     Active Substance: VALPROATE SODIUM
     Indication: EPILEPSY
     Dosage: UNK
  3. LUMINAL [PHENOBARBITAL] [Concomitant]
     Indication: PARTIAL SEIZURES
     Dosage: UNK
  4. VIMPAT [Suspect]
     Active Substance: LACOSAMIDE
     Indication: EPILEPSY
     Dosage: CREEP IN DOSAGE UP TO 800 MG
  5. BRIVARACETAM [Suspect]
     Active Substance: BRIVARACETAM
     Indication: EPILEPSY
     Dosage: 400 MG
  6. LUMINAL [PHENOBARBITAL] [Concomitant]
     Indication: EPILEPSY
  7. BRIVARACETAM [Suspect]
     Active Substance: BRIVARACETAM
     Indication: PARTIAL SEIZURES
  8. VALPROAT [Concomitant]
     Active Substance: VALPROATE SODIUM
     Indication: PARTIAL SEIZURES

REACTIONS (1)
  - Epilepsy [Recovered/Resolved]
